FAERS Safety Report 5688937-7 (Version None)
Quarter: 2008Q1

REPORT INFORMATION
  Report Type: 
  Country: None (occurrence: None)
  Receive Date: 20080331
  Receipt Date: 20080320
  Transmission Date: 20080703
  Serious: Yes (Other)
  Sender: FDA-Public Use
  Company Number: HQWYE645808OCT04

PATIENT
  Sex: Female

DRUGS (3)
  1. PREMPRO [Suspect]
     Dosage: 0.3MG/1.5MG
     Route: 048
  2. ASCORBIC ACID/ERGOCALCIFEROL/FOLIC ACID/NICOTINAMIDE/PANTHENOL/RETINOL [Concomitant]
  3. PREMARIN [Suspect]
     Dosage: 0.3MG
     Route: 048

REACTIONS (2)
  - BREAST CANCER METASTATIC [None]
  - FIBROCYSTIC BREAST DISEASE [None]
